FAERS Safety Report 8184229-5 (Version None)
Quarter: 2012Q1

REPORT INFORMATION
  Report Type: 
  Country: None (occurrence: None)
  Receive Date: 20120305
  Receipt Date: 20120229
  Transmission Date: 20120608
  Serious: No
  Sender: FDA-Public Use
  Company Number: US-PFIZER INC-2012055988

PATIENT
  Sex: Male
  Weight: 86.168 kg

DRUGS (7)
  1. LYRICA [Suspect]
     Indication: BURNING SENSATION
  2. NEURONTIN [Suspect]
     Indication: BURNING SENSATION
  3. LYRICA [Suspect]
     Indication: PARAESTHESIA
  4. LYRICA [Suspect]
     Indication: NEUROPATHY PERIPHERAL
     Dosage: UNK
     Route: 048
     Dates: start: 20110101
  5. NEURONTIN [Suspect]
     Indication: PARAESTHESIA
  6. NEURONTIN [Suspect]
     Indication: NEUROPATHY PERIPHERAL
     Dosage: UNK
     Route: 048
     Dates: start: 20110101
  7. NAPROXEN (ALEVE) [Concomitant]
     Indication: BACK DISORDER
     Dosage: UNK, AS NEEDED
     Route: 048

REACTIONS (1)
  - DISCOMFORT [None]
